FAERS Safety Report 10028138 (Version 1)
Quarter: 2014Q1

REPORT INFORMATION
  Report Type: Report from Study
  Country: CL (occurrence: CL)
  Receive Date: 20140321
  Receipt Date: 20140321
  Transmission Date: 20141002
  Serious: Yes (Disabling)
  Sender: FDA-Public Use
  Company Number: PHHY2014CL034008

PATIENT
  Age: 16 Year
  Sex: Male
  Weight: 80 kg

DRUGS (3)
  1. SANDOSTATIN LAR [Suspect]
     Indication: ACROMEGALY
     Dosage: 20 MG, MONTHLY
     Route: 030
     Dates: start: 201308
  2. LEVOTHYROXINE [Concomitant]
     Dosage: 0.25 DF, DAILY
     Route: 048
     Dates: start: 201308
  3. CABERGOLINA [Concomitant]
     Dosage: 1 DF, QW2 (ON TUESDAY AND SATURDAY)
     Route: 048
     Dates: start: 201308

REACTIONS (4)
  - Ocular discomfort [Not Recovered/Not Resolved]
  - Eye irritation [Not Recovered/Not Resolved]
  - Lacrimation increased [Not Recovered/Not Resolved]
  - Photopsia [Not Recovered/Not Resolved]
